FAERS Safety Report 19210614 (Version 1)
Quarter: 2021Q2

REPORT INFORMATION
  Report Type: Spontaneous
  Country: SE (occurrence: SE)
  Receive Date: 20210504
  Receipt Date: 20210504
  Transmission Date: 20210717
  Serious: Yes (Hospitalization)
  Sender: FDA-Public Use
  Company Number: SE-SA-2021SA145733

PATIENT
  Age: 58 Year
  Sex: Male

DRUGS (19)
  1. TROMBYL [Concomitant]
     Active Substance: ASPIRIN
     Dates: start: 20180327
  2. OXYCONTIN [Concomitant]
     Active Substance: OXYCODONE HYDROCHLORIDE
     Dosage: 2 PROLONGED RELEASE TABLETS AT 8 + 1 PROLONGED RELEASE TABLET AT 14 + 2 PROLONGED RELEASE TABLETS AT
     Dates: start: 20210311, end: 20210326
  3. RIFAMPICIN [Suspect]
     Active Substance: RIFAMPIN
     Indication: DEVICE RELATED INFECTION
     Dates: start: 20210311
  4. OXYCONTIN [Concomitant]
     Active Substance: OXYCODONE HYDROCHLORIDE
     Dosage: 1 PROLONGED RELEASE TABLET AT 8 + 2 PROLONGED RELEASE TABLETS AT 20 FOR 5 DAYS
     Dates: start: 20210311, end: 20210326
  5. OXYNORM [Concomitant]
     Active Substance: OXYCODONE HYDROCHLORIDE
     Dosage: 1?2 AS NEEDED, MAX 6 / DAY
     Dates: start: 20210311, end: 20210408
  6. MIRTAZAPIN ACTAVIS [Concomitant]
     Active Substance: MIRTAZAPINE
     Dates: start: 20171016
  7. ATORVASTATIN KRKA [Concomitant]
     Active Substance: ATORVASTATIN
     Dates: start: 20180327
  8. EMGESAN [Concomitant]
     Active Substance: MAGNESIUM HYDROXIDE
     Dates: start: 20190312, end: 20210415
  9. PROPAVAN [Concomitant]
     Active Substance: PROPIOMAZINE
     Dates: start: 20210309
  10. LOSARTAN AND HYDROCHLOROTHIAZIDE [Concomitant]
     Active Substance: HYDROCHLOROTHIAZIDE\LOSARTAN POTASSIUM
     Dates: start: 20180327
  11. CILAXORAL [Concomitant]
     Active Substance: SODIUM PICOSULFATE
     Dates: start: 20210311, end: 20210407
  12. OXYCONTIN [Concomitant]
     Active Substance: OXYCODONE HYDROCHLORIDE
     Dosage: 1 PROLONGED RELEASE TABLET AT 8 FOR 5 DAYS
     Dates: start: 20210311, end: 20210326
  13. SERTRALINE [Concomitant]
     Active Substance: SERTRALINE HYDROCHLORIDE
     Dates: start: 20171016
  14. OXYCONTIN [Concomitant]
     Active Substance: OXYCODONE HYDROCHLORIDE
     Dates: start: 20210311, end: 20210326
  15. LAKTULOS [Concomitant]
     Dosage: 10?25X1 DRUG_DOSAGE_NUMBER : 1 DRUG_DOSAGE_UNIT :
     Dates: start: 20200414
  16. RIMACTAN [RIFAMPICIN] [Concomitant]
     Active Substance: RIFAMPIN
     Dates: start: 20210311, end: 20210407
  17. ALVEDON [Concomitant]
     Active Substance: ACETAMINOPHEN
     Dates: start: 20180409
  18. CIPROFLOXACIN ACCORD [Concomitant]
     Active Substance: CIPROFLOXACIN
     Dates: start: 20210311, end: 20210407
  19. PANTOPRAZOL KRKA [Concomitant]
     Active Substance: PANTOPRAZOLE
     Dates: start: 20200414

REACTIONS (4)
  - Pyrexia [Recovered/Resolved]
  - Hypotonia [Recovered/Resolved]
  - Chills [Recovered/Resolved]
  - General physical health deterioration [Recovered/Resolved]

NARRATIVE: CASE EVENT DATE: 20210325
